FAERS Safety Report 9744331 (Version 1)
Quarter: 2013Q4

REPORT INFORMATION
  Report Type: Spontaneous
  Country: CA (occurrence: CA)
  Receive Date: 20131210
  Receipt Date: 20131210
  Transmission Date: 20140711
  Serious: Yes (Other)
  Sender: FDA-Public Use
  Company Number: CA-009507513-1312CAN003903

PATIENT
  Sex: Female

DRUGS (10)
  1. DECADRON [Suspect]
     Indication: PRODUCT USED FOR UNKNOWN INDICATION
     Dosage: UNK
     Route: 065
  2. HERCEPTIN [Suspect]
     Indication: HER-2 POSITIVE BREAST CANCER
     Dosage: UNK
     Route: 065
     Dates: start: 2009
  3. HERCEPTIN [Suspect]
     Indication: BREAST CANCER METASTATIC
  4. XELODA [Suspect]
     Indication: PRODUCT USED FOR UNKNOWN INDICATION
     Dosage: UNK
     Route: 065
     Dates: start: 201209, end: 201309
  5. TAXOL [Suspect]
     Indication: PRODUCT USED FOR UNKNOWN INDICATION
     Dosage: UNK
     Route: 065
  6. TAXOL [Suspect]
     Dosage: SECOND CYCLE
     Route: 065
     Dates: start: 2009
  7. TYKERB [Suspect]
     Indication: PRODUCT USED FOR UNKNOWN INDICATION
     Dosage: UNK
     Route: 065
     Dates: start: 201209, end: 201309
  8. KEPPRA [Concomitant]
     Indication: PRODUCT USED FOR UNKNOWN INDICATION
     Route: 065
  9. NAVELBIN [Concomitant]
     Indication: PRODUCT USED FOR UNKNOWN INDICATION
     Dosage: EVERY 6 MOTHS WITH HERCEPTIN
     Route: 065
     Dates: start: 2009
  10. AVALOX [Concomitant]
     Indication: PRODUCT USED FOR UNKNOWN INDICATION
     Dosage: UNK
     Route: 065
     Dates: start: 201311

REACTIONS (12)
  - Metastases to central nervous system [Unknown]
  - Convulsion [Unknown]
  - Adverse event [Unknown]
  - Dyspnoea [Not Recovered/Not Resolved]
  - Weight decreased [Not Recovered/Not Resolved]
  - Muscle atrophy [Not Recovered/Not Resolved]
  - Physiotherapy [Not Recovered/Not Resolved]
  - Brain operation [Unknown]
  - Tremor [Not Recovered/Not Resolved]
  - Onychomadesis [Unknown]
  - Breast cancer metastatic [Unknown]
  - HER-2 positive breast cancer [Unknown]
